FAERS Safety Report 17641887 (Version 3)
Quarter: 2020Q2

REPORT INFORMATION
  Report Type: Report from Study
  Country: US (occurrence: US)
  Receive Date: 20200408
  Receipt Date: 20200520
  Transmission Date: 20200713
  Serious: Yes (Hospitalization, Other)
  Sender: FDA-Public Use
  Company Number: US-ALEXION PHARMACEUTICALS INC-A202004922

PATIENT
  Sex: Male

DRUGS (2)
  1. KANUMA [Suspect]
     Active Substance: SEBELIPASE ALFA
     Dosage: UNK
     Route: 065
  2. KANUMA [Suspect]
     Active Substance: SEBELIPASE ALFA
     Indication: LYSOSOMAL ACID LIPASE DEFICIENCY
     Dosage: UNK
     Route: 065

REACTIONS (12)
  - Post procedural complication [Unknown]
  - Heart rate decreased [Unknown]
  - Malaise [Unknown]
  - Central venous catheterisation [Unknown]
  - Haemorrhage [Unknown]
  - Oxygen saturation decreased [Unknown]
  - Cardio-respiratory arrest [Unknown]
  - Infusion related reaction [Recovering/Resolving]
  - Grunting [Unknown]
  - Paracentesis [Unknown]
  - Feeding disorder [Not Recovered/Not Resolved]
  - Anaphylactic reaction [Recovering/Resolving]

NARRATIVE: CASE EVENT DATE: 20200331
